FAERS Safety Report 4388106-7 (Version None)
Quarter: 2004Q2

REPORT INFORMATION
  Report Type: 
  Country: None (occurrence: None)
  Receive Date: 20040630
  Receipt Date: 20040630
  Transmission Date: 20050107
  Serious: No
  Sender: FDA-Public Use
  Company Number: None

PATIENT
  Age: 42 Year
  Sex: Female
  Weight: 77.1115 kg

DRUGS (2)
  1. PROZAC [Suspect]
     Indication: DEPRESSION
     Dosage: 60 MG QD. ORAL
     Route: 048
     Dates: start: 19940905, end: 20040530
  2. PRILOSEC [Concomitant]

REACTIONS (6)
  - ANGER [None]
  - DRUG WITHDRAWAL SYNDROME [None]
  - FEELING ABNORMAL [None]
  - MENTAL DISORDER [None]
  - NIGHT SWEATS [None]
  - NIGHTMARE [None]
